FAERS Safety Report 4865462-4 (Version None)
Quarter: 2005Q4

REPORT INFORMATION
  Report Type: 
  Country: None (occurrence: None)
  Receive Date: 20051220
  Receipt Date: 20051208
  Transmission Date: 20060501
  Serious: Yes (Death, Life-Threatening, Other)
  Sender: FDA-Public Use
  Company Number: 200512798BWH

PATIENT
  Age: 76 Year
  Sex: Male

DRUGS (8)
  1. TRASYLOL [Suspect]
     Indication: CORONARY ARTERY SURGERY
  2. METOPROLOL [Concomitant]
  3. LISINOPRIL [Concomitant]
  4. IMDUR [Concomitant]
  5. VYTORIN (EZETIMIBE) [Concomitant]
  6. PROZAC [Concomitant]
  7. ADVAIR DISKUS 250/50 [Concomitant]
  8. ASPIRIN [Concomitant]

REACTIONS (7)
  - BLOOD PRESSURE DECREASED [None]
  - CARDIAC PROCEDURE COMPLICATION [None]
  - EJECTION FRACTION DECREASED [None]
  - ELECTROCARDIOGRAM ST SEGMENT ELEVATION [None]
  - GASTROINTESTINAL HAEMORRHAGE [None]
  - SINUS BRADYCARDIA [None]
  - VASCULAR GRAFT OCCLUSION [None]
